FAERS Safety Report 4951729-8 (Version None)
Quarter: 2006Q1

REPORT INFORMATION
  Report Type: 
  Country: None (occurrence: None)
  Receive Date: 20060323
  Receipt Date: 20060321
  Transmission Date: 20060701
  Serious: Yes (Other)
  Sender: FDA-Public Use
  Company Number: US-GLAXOSMITHKLINE-A0598426A

PATIENT
  Age: 30 Year
  Sex: Male

DRUGS (2)
  1. LAMICTAL [Suspect]
     Dosage: 200MG UNKNOWN
     Route: 048
  2. TOPAMAX [Concomitant]

REACTIONS (3)
  - ABDOMINAL PAIN [None]
  - AGGRESSION [None]
  - CONVULSION [None]
